FAERS Safety Report 14051050 (Version 1)
Quarter: 2017Q4

REPORT INFORMATION
  Report Type: Spontaneous
  Country: US (occurrence: US)
  Receive Date: 20171005
  Receipt Date: 20171005
  Transmission Date: 20180321
  Serious: Yes (Other)
  Sender: FDA-Public Use
  Company Number: US-BAYER-2017-184576

PATIENT
  Age: 67 Year
  Sex: Male

DRUGS (4)
  1. CRESTOR [Concomitant]
     Active Substance: ROSUVASTATIN CALCIUM
     Dosage: UNK
  2. TRICOR [Concomitant]
     Active Substance: FENOFIBRATE
     Dosage: UNK
  3. AVELOX [Suspect]
     Active Substance: MOXIFLOXACIN HYDROCHLORIDE
     Indication: SINUSITIS
     Dosage: UNK
     Dates: start: 20111229, end: 20111229
  4. FISH OIL [Concomitant]
     Active Substance: FISH OIL
     Dosage: UNK

REACTIONS (5)
  - Paraesthesia [Recovering/Resolving]
  - Bradycardia [Recovering/Resolving]
  - Hypotension [Recovering/Resolving]
  - Loss of consciousness [Recovering/Resolving]
  - Feeling hot [Recovering/Resolving]

NARRATIVE: CASE EVENT DATE: 20111229
